FAERS Safety Report 15537091 (Version 1)
Quarter: 2018Q4

REPORT INFORMATION
  Report Type: Spontaneous
  Country: GB (occurrence: GB)
  Receive Date: 20181022
  Receipt Date: 20181022
  Transmission Date: 20190205
  Serious: Yes (Other)
  Sender: FDA-Public Use
  Company Number: GB-TEVA-2018-GB-966870

PATIENT
  Age: 34 Year
  Sex: Male
  Weight: 86 kg

DRUGS (5)
  1. BROMAZEPAM [Concomitant]
     Active Substance: BROMAZEPAM
     Route: 065
  2. TRAMADOL. [Suspect]
     Active Substance: TRAMADOL
     Indication: BACK PAIN
     Dosage: 50
     Route: 048
     Dates: start: 20180916
  3. BRUFEN [Concomitant]
     Active Substance: IBUPROFEN
     Route: 065
  4. BOOTS PARACETAMOL [Concomitant]
     Route: 065
  5. SERTRALINE [Concomitant]
     Active Substance: SERTRALINE HYDROCHLORIDE
     Route: 065

REACTIONS (1)
  - Insomnia [Recovering/Resolving]
